FAERS Safety Report 7907108-4 (Version None)
Quarter: 2011Q4

REPORT INFORMATION
  Report Type: 
  Country: None (occurrence: None)
  Receive Date: 20111110
  Receipt Date: 20110524
  Transmission Date: 20120403
  Serious: No
  Sender: FDA-Public Use
  Company Number: US-ASTRAZENECA-2010SE32827

PATIENT
  Sex: Female

DRUGS (12)
  1. LISINOPRIL [Suspect]
     Route: 048
  2. LEVOTHYROXINE SODIUM [Concomitant]
  3. ZANTAC [Concomitant]
  4. CARVEDILOL [Concomitant]
  5. NEXIUM [Concomitant]
     Route: 048
  6. MIACALCIN [Concomitant]
  7. CALCITONIN SALMON [Concomitant]
  8. MACRODANTIN [Concomitant]
  9. ATACAND [Suspect]
     Route: 048
  10. FUROSEMIDE [Concomitant]
  11. PLAVIX [Concomitant]
  12. KLOR-CON [Concomitant]

REACTIONS (5)
  - SWELLING [None]
  - DRUG HYPERSENSITIVITY [None]
  - HIATUS HERNIA [None]
  - FEELING JITTERY [None]
  - ABDOMINAL DISCOMFORT [None]
